FAERS Safety Report 18126851 (Version 2)
Quarter: 2020Q3

REPORT INFORMATION
  Report Type: Report from Study
  Country: None (occurrence: BE)
  Receive Date: 20200810
  Receipt Date: 20200828
  Transmission Date: 20201103
  Serious: Yes (Death, Hospitalization)
  Sender: FDA-Public Use
  Company Number: BE-ABBVIE-20K-013-3517633-00

PATIENT
  Sex: Male

DRUGS (3)
  1. DUODOPA [Suspect]
     Active Substance: CARBIDOPA\LEVODOPA
     Dosage: MD=10.5ML, CD=4.8ML/HR DURING 16HRS, ED=2.5ML
     Route: 050
     Dates: start: 20200330, end: 20200713
  2. DUODOPA [Suspect]
     Active Substance: CARBIDOPA\LEVODOPA
     Indication: PARKINSON^S DISEASE
     Dosage: UNKNOWN DOSAGES
     Route: 050
     Dates: start: 20140901, end: 20200330
  3. DUODOPA [Suspect]
     Active Substance: CARBIDOPA\LEVODOPA
     Dosage: MD=10.5ML, CD=2.5ML/HR DURING 16HRS, ED=2.5ML
     Route: 050
     Dates: start: 20200713

REACTIONS (4)
  - Death [Fatal]
  - Respiratory disorder [Unknown]
  - Pyrexia [Unknown]
  - Depressed level of consciousness [Unknown]

NARRATIVE: CASE EVENT DATE: 2020
